FAERS Safety Report 15081255 (Version 1)
Quarter: 2018Q2

REPORT INFORMATION
  Report Type: Spontaneous
  Country: US (occurrence: US)
  Receive Date: 20180628
  Receipt Date: 20180628
  Transmission Date: 20180711
  Serious: No
  Sender: FDA-Public Use
  Company Number: US-ACCORD-064492

PATIENT
  Age: 83 Year
  Sex: Male
  Weight: 77.11 kg

DRUGS (1)
  1. CLONAZEPAM ACCORD [Suspect]
     Active Substance: CLONAZEPAM
     Indication: BURNING MOUTH SYNDROME
     Dosage: STRENGTH: 0.5 MG?DOSE: ONE TABLET TID (IT SAYS SUCK TABLET FOR 3 MINUTES AND SPIT IT OUT)
     Route: 048
     Dates: start: 20180302

REACTIONS (5)
  - Product solubility abnormal [Unknown]
  - Pruritus [Not Recovered/Not Resolved]
  - Product substitution issue [Unknown]
  - Rash [Not Recovered/Not Resolved]
  - Off label use [Unknown]
